FAERS Safety Report 8170689-2 (Version None)
Quarter: 2012Q1

REPORT INFORMATION
  Report Type: 
  Country: None (occurrence: None)
  Receive Date: 20120104
  Receipt Date: 20111116
  Transmission Date: 20120608
  Serious: No
  Sender: FDA-Public Use
  Company Number: 2011HGS-002810

PATIENT
  Age: 50 Year
  Sex: Female
  Weight: 108.8633 kg

DRUGS (12)
  1. BENLYSTA [Suspect]
     Indication: SYSTEMIC LUPUS ERYTHEMATOSUS
     Dosage: 1 IN 28 D, INTRAVENOUS DRIP
     Route: 041
     Dates: start: 20110601, end: 20110801
  2. ATIVAN [Concomitant]
  3. PSYLLIUM HUSK (PLANTAGO OVATA HUSK) [Concomitant]
  4. CALCIUM WITH VITAMIN D (CALCIUM WITH VITAMIN D) [Concomitant]
  5. GLUCOSAMINE CHONDROITIN (GLUCOSAMINE W/CHONDROITIN) [Concomitant]
  6. MOBIC [Concomitant]
  7. ROBAXIN [Concomitant]
  8. MOTRIN [Concomitant]
  9. ZANTAC [Concomitant]
  10. ZOCOR [Concomitant]
  11. DIAZIDE (GLICLAZIDE) [Concomitant]
  12. NEURONTIN [Concomitant]

REACTIONS (1)
  - LYMPHADENOPATHY [None]
